FAERS Safety Report 17153572 (Version 1)
Quarter: 2019Q4

REPORT INFORMATION
  Report Type: Spontaneous
  Country: US (occurrence: US)
  Receive Date: 20191213
  Receipt Date: 20191213
  Transmission Date: 20200122
  Serious: No
  Sender: FDA-Public Use
  Company Number: US-ENDO PHARMACEUTICALS INC-2019-104886

PATIENT
  Age: 37 Year
  Sex: Male

DRUGS (1)
  1. TESTOSTERONE. [Suspect]
     Active Substance: TESTOSTERONE
     Indication: PRODUCT USED FOR UNKNOWN INDICATION
     Dosage: 5 UNK, EVERY MORNING
     Route: 065
     Dates: start: 20190510

REACTIONS (6)
  - Migraine [Recovered/Resolved]
  - Headache [Not Recovered/Not Resolved]
  - Drug ineffective [Unknown]
  - Hyperhidrosis [Unknown]
  - Nausea [Recovered/Resolved]
  - Product odour abnormal [None]

NARRATIVE: CASE EVENT DATE: 20190510
